FAERS Safety Report 15399302 (Version 2)
Quarter: 2018Q3

REPORT INFORMATION
  Report Type: Spontaneous
  Country: US (occurrence: US)
  Receive Date: 20180918
  Receipt Date: 20180919
  Transmission Date: 20181010
  Serious: No
  Sender: FDA-Public Use
  Company Number: US-009507513-1809USA007717

PATIENT
  Sex: Female

DRUGS (2)
  1. PROVENTIL [Suspect]
     Active Substance: ALBUTEROL
     Dosage: UNK
  2. PROVENTIL [Suspect]
     Active Substance: ALBUTEROL
     Dosage: UNK

REACTIONS (3)
  - Product quality issue [Unknown]
  - Incorrect dose administered by product [Unknown]
  - No adverse event [Unknown]
